FAERS Safety Report 10588895 (Version 2)
Quarter: 2014Q4

REPORT INFORMATION
  Report Type: Spontaneous
  Country: FI (occurrence: FI)
  Receive Date: 20141117
  Receipt Date: 20141125
  Transmission Date: 20150529
  Serious: Yes (Hospitalization)
  Sender: FDA-Public Use
  Company Number: FI-ROCHE-1490612

PATIENT
  Sex: Female
  Weight: 43 kg

DRUGS (3)
  1. BONVIVA [Suspect]
     Active Substance: IBANDRONATE SODIUM
     Indication: OSTEOPOROSIS
     Route: 048
  2. EXELON [Concomitant]
     Active Substance: RIVASTIGMINE TARTRATE
     Indication: DEMENTIA ALZHEIMER^S TYPE
     Dosage: 9,5 MG
     Route: 062
  3. PANADOL [Concomitant]
     Active Substance: ACETAMINOPHEN

REACTIONS (3)
  - Fall [Unknown]
  - Wound [Unknown]
  - Hip fracture [Unknown]

NARRATIVE: CASE EVENT DATE: 2013
